FAERS Safety Report 24653401 (Version 2)
Quarter: 2024Q4

REPORT INFORMATION
  Report Type: Spontaneous
  Country: CA (occurrence: CA)
  Receive Date: 20241122
  Receipt Date: 20241209
  Transmission Date: 20250115
  Serious: Yes (Other)
  Sender: ABBVIE
  Company Number: CA-ABBVIE-6012037

PATIENT

DRUGS (2)
  1. FOSCARBIDOPA\FOSLEVODOPA [Suspect]
     Active Substance: FOSCARBIDOPA\FOSLEVODOPA
     Indication: Product used for unknown indication
     Route: 058
     Dates: end: 20241127
  2. SULFATRIM [Concomitant]
     Active Substance: SULFAMETHOXAZOLE\TRIMETHOPRIM
     Indication: Erythema
     Dosage: 800/160
     Route: 048
     Dates: start: 20241126

REACTIONS (6)
  - Purulent discharge [Recovered/Resolved]
  - Erythema [Not Recovered/Not Resolved]
  - Erythema [Recovered/Resolved]
  - Abscess [Recovered/Resolved]
  - Tenderness [Recovered/Resolved]
  - Skin disorder [Unknown]

NARRATIVE: CASE EVENT DATE: 20240101
